FAERS Safety Report 6826910-3 (Version None)
Quarter: 2010Q3

REPORT INFORMATION
  Report Type: 
  Country: None (occurrence: None)
  Receive Date: 20100709
  Receipt Date: 20100629
  Transmission Date: 20110219
  Serious: Yes (Other)
  Sender: FDA-Public Use
  Company Number: US-ROCHE-713000

PATIENT
  Sex: Female
  Weight: 70.3 kg

DRUGS (10)
  1. ACTEMRA [Suspect]
     Indication: RHEUMATOID ARTHRITIS
     Route: 042
     Dates: start: 20100401
  2. PREDNISONE [Concomitant]
     Indication: RHEUMATOID ARTHRITIS
     Route: 048
  3. MORPHINE SULFATE [Concomitant]
     Indication: RHEUMATOID ARTHRITIS
     Route: 048
  4. NEXIUM [Concomitant]
     Dosage: DRUG INDICATION: PREVENTION OF STOMACH TROUBLES.
     Route: 048
  5. FOLIC ACID [Concomitant]
     Route: 048
  6. PREMARIN [Concomitant]
     Indication: MENOPAUSE
     Route: 048
  7. TOPROL-XL [Concomitant]
     Indication: MIGRAINE
     Route: 048
  8. LASIX [Concomitant]
     Dosage: FREQUENCY: QAM
     Route: 048
  9. BUTAMIDE [Concomitant]
     Dosage: FREQUENCY: QAM
     Route: 048
  10. KLOR-CON [Concomitant]
     Dosage: DRUG NAME: KLOR-CON M20,  FREQUENCY: QAM
     Route: 048

REACTIONS (3)
  - BLINDNESS [None]
  - JOINT SWELLING [None]
  - OEDEMA PERIPHERAL [None]
